FAERS Safety Report 14859240 (Version 1)
Quarter: 2018Q2

REPORT INFORMATION
  Report Type: Spontaneous
  Country: FR (occurrence: FR)
  Receive Date: 20180508
  Receipt Date: 20180508
  Transmission Date: 20180711
  Serious: Yes (Other)
  Sender: FDA-Public Use
  Company Number: FR-MERCK KGAA-2047385

PATIENT
  Age: 35 Year
  Sex: Female

DRUGS (1)
  1. NOVOTHYROX [Suspect]
     Active Substance: LEVOTHYROXINE SODIUM
     Indication: HYPOTHYROIDISM
     Dates: start: 20170523

REACTIONS (31)
  - Memory impairment [None]
  - Decreased activity [None]
  - Arthralgia [None]
  - Back pain [None]
  - Asthenia [Recovering/Resolving]
  - Blood prolactin increased [None]
  - Photophobia [None]
  - Social avoidant behaviour [None]
  - Musculoskeletal stiffness [None]
  - Pain in extremity [None]
  - Depression [None]
  - Emotional distress [None]
  - Gastrointestinal motility disorder [None]
  - Blood thyroid stimulating hormone increased [None]
  - Alopecia [None]
  - Myalgia [None]
  - Fatigue [None]
  - Insomnia [None]
  - Muscle spasms [None]
  - Loss of personal independence in daily activities [None]
  - Asthma [None]
  - Muscular weakness [None]
  - Hyperacusis [None]
  - Palpitations [Recovering/Resolving]
  - Epilepsy [Recovering/Resolving]
  - Mood altered [None]
  - Sense of oppression [None]
  - Dizziness [None]
  - Disturbance in attention [None]
  - Middle insomnia [None]
  - Weight decreased [None]

NARRATIVE: CASE EVENT DATE: 2017
